FAERS Safety Report 7073468-2 (Version None)
Quarter: 2010Q4

REPORT INFORMATION
  Report Type: 
  Country: None (occurrence: None)
  Receive Date: 20101029
  Receipt Date: 20100622
  Transmission Date: 20110411
  Serious: No
  Sender: FDA-Public Use
  Company Number: A0866562A

PATIENT
  Sex: Female

DRUGS (4)
  1. ADVAIR DISKUS 100/50 [Suspect]
     Indication: CHRONIC OBSTRUCTIVE PULMONARY DISEASE
     Dosage: 1BLS TWICE PER DAY
     Route: 055
  2. VENTOLIN [Suspect]
     Indication: BRONCHOSPASM
     Route: 055
  3. CARDIAC MEDICATION [Concomitant]
     Indication: CARDIAC OUTPUT DECREASED
  4. OXYGEN [Concomitant]
     Route: 045

REACTIONS (2)
  - DYSPNOEA [None]
  - MALAISE [None]
